FAERS Safety Report 4679706-5 (Version None)
Quarter: 2005Q2

REPORT INFORMATION
  Report Type: 
  Country: None (occurrence: None)
  Receive Date: 20050531
  Receipt Date: 20050512
  Transmission Date: 20051028
  Serious: Yes (Other)
  Sender: FDA-Public Use
  Company Number: 2005JP000849

PATIENT
  Age: 23 Year
  Sex: Male
  Weight: 52 kg

DRUGS (4)
  1. PROGRAF [Suspect]
     Indication: RENAL TRANSPLANT
     Dosage: 2.00 MG, BID, ORAL
     Route: 048
     Dates: start: 20050404, end: 20050410
  2. SOLU-MEDROL [Concomitant]
  3. MEDROL [Concomitant]
  4. CELLCEPT [Concomitant]

REACTIONS (8)
  - ACIDOSIS [None]
  - ANXIETY [None]
  - BLOOD CREATINE PHOSPHOKINASE INCREASED [None]
  - HYPERVENTILATION [None]
  - MUSCLE RIGIDITY [None]
  - MUSCULOSKELETAL STIFFNESS [None]
  - PAIN [None]
  - RENAL TUBULAR ACIDOSIS [None]
